FAERS Safety Report 10563906 (Version 2)
Quarter: 2014Q4

REPORT INFORMATION
  Report Type: Spontaneous
  Country: US (occurrence: US)
  Receive Date: 20141104
  Receipt Date: 20141126
  Transmission Date: 20150529
  Serious: Yes (Hospitalization)
  Sender: FDA-Public Use
  Company Number: US-009507513-1410USA015437

PATIENT
  Age: 78 Year
  Sex: Female

DRUGS (3)
  1. FOSAMAX [Suspect]
     Active Substance: ALENDRONATE SODIUM
     Indication: OSTEOPOROSIS
     Dosage: UNK, QD
     Route: 048
  2. ASPIRIN. [Interacting]
     Active Substance: ASPIRIN
     Indication: ANTIPLATELET THERAPY
     Dosage: UNK, QD
     Route: 048
  3. CLOPIDOGREL [Interacting]
     Active Substance: CLOPIDOGREL BISULFATE
     Indication: ANTIPLATELET THERAPY
     Dosage: UNK, QD
     Route: 048

REACTIONS (2)
  - Spontaneous haematoma [Recovered/Resolved]
  - Drug interaction [Unknown]
